FAERS Safety Report 9814328 (Version 2)
Quarter: 2014Q1

REPORT INFORMATION
  Report Type: Spontaneous
  Country: US (occurrence: US)
  Receive Date: 20140113
  Receipt Date: 20140210
  Transmission Date: 20141002
  Serious: No
  Sender: FDA-Public Use
  Company Number: US-009507513-1401USA004250

PATIENT
  Sex: Female
  Weight: 61.22 kg

DRUGS (5)
  1. OXYTROL FOR WOMEN [Suspect]
     Indication: INCONTINENCE
     Dosage: 1 DF, Q4D
     Route: 062
     Dates: start: 201311, end: 201312
  2. OXYTROL FOR WOMEN [Suspect]
     Dosage: UNK
  3. LEVOTHYROXINE SODIUM [Concomitant]
     Indication: THYROID DISORDER
     Dosage: UNK, UNKNOWN
  4. PRAVASTATIN SODIUM [Concomitant]
     Indication: BLOOD CHOLESTEROL
     Dosage: UNK, UNKNOWN
  5. ALENDRONATE SODIUM [Concomitant]
     Indication: BONE DENSITY ABNORMAL
     Dosage: UNK, UNKNOWN

REACTIONS (6)
  - Condition aggravated [Recovered/Resolved]
  - Unevaluable event [Unknown]
  - Anxiety [Unknown]
  - Discomfort [Unknown]
  - Burning sensation [Recovering/Resolving]
  - Drug ineffective [Unknown]
